FAERS Safety Report 7921716-6 (Version None)
Quarter: 2011Q4

REPORT INFORMATION
  Report Type: 
  Country: None (occurrence: None)
  Receive Date: 20111117
  Receipt Date: 20111114
  Transmission Date: 20120403
  Serious: Yes (Other)
  Sender: FDA-Public Use
  Company Number: US-GLAXOSMITHKLINE-A0944968A

PATIENT
  Age: 80 Year
  Sex: Female

DRUGS (3)
  1. BUDESONIDE [Concomitant]
  2. DILTIAZEM HCL [Concomitant]
  3. ADVAIR DISKUS 100/50 [Suspect]
     Indication: ASTHMA
     Dosage: 1PUFF TWICE PER DAY
     Route: 055
     Dates: start: 20110601

REACTIONS (5)
  - MACULAR DEGENERATION [None]
  - OSTEOPOROSIS [None]
  - SENSATION OF HEAVINESS [None]
  - FATIGUE [None]
  - DYSPHONIA [None]
